FAERS Safety Report 4530528-5 (Version None)
Quarter: 2004Q4

REPORT INFORMATION
  Report Type: 
  Country: None (occurrence: None)
  Receive Date: 20041216
  Receipt Date: 20041206
  Transmission Date: 20050328
  Serious: Yes (Death, Life-Threatening, Hospitalization, Disabling)
  Sender: FDA-Public Use
  Company Number: F01200403849

PATIENT
  Age: 72 Year
  Sex: Female

DRUGS (7)
  1. OXALIPLATIN - SOLUTION - 80 MG [Suspect]
     Indication: COLORECTAL CANCER METASTATIC
     Dosage: 80 MG 1/WEEK INTRAVENOUS NOS
     Route: 042
  2. FLUOROURACIL - SOLUTION - 3200 MG [Suspect]
     Dosage: 3200 MG 1/WEEK INTRAVENOUS NOS
     Route: 042
  3. RIBOFLAVIN - 800 MG [Suspect]
     Dosage: 800 MG 1/WEEK
  4. BEVACIZUMAB - SOLUTION - 5 MG/KG [Suspect]
     Dosage: 5 MG/KG Q2W INTRAVENOUS NOS
     Route: 042
  5. VITAMIN B6 [Concomitant]
  6. THYROXINE (LEVOTHYROXINE) [Concomitant]
  7. NITRENDIPIN (NITRENDIPINE) [Concomitant]

REACTIONS (11)
  - DIARRHOEA [None]
  - HAEMATOCRIT DECREASED [None]
  - HAEMOGLOBIN DECREASED [None]
  - INTESTINAL HAEMORRHAGE [None]
  - LEUKOPENIA [None]
  - MUCOSAL INFLAMMATION [None]
  - MULTI-ORGAN FAILURE [None]
  - PERITONITIS [None]
  - PLATELET COUNT DECREASED [None]
  - RED BLOOD CELL COUNT DECREASED [None]
  - SEPSIS [None]
